FAERS Safety Report 8729835 (Version 2)
Quarter: 2012Q4

REPORT INFORMATION
  Report Type: Report from Study
  Country: JP (occurrence: JP)
  Receive Date: 20120817
  Receipt Date: 20121107
  Transmission Date: 20130627
  Serious: Yes (Other)
  Sender: FDA-Public Use
  Company Number: JP-JNJFOC-20120209075

PATIENT
  Age: 33 Year
  Sex: Female
  Weight: 48 kg

DRUGS (22)
  1. REMICADE [Suspect]
     Indication: BEHCET^S SYNDROME
     Route: 042
     Dates: start: 20091027
  2. REMICADE [Suspect]
     Indication: BEHCET^S SYNDROME
     Route: 042
     Dates: start: 20100209
  3. REMICADE [Suspect]
     Indication: BEHCET^S SYNDROME
     Route: 042
     Dates: start: 20100330
  4. REMICADE [Suspect]
     Indication: BEHCET^S SYNDROME
     Route: 042
     Dates: start: 20100519
  5. REMICADE [Suspect]
     Indication: BEHCET^S SYNDROME
     Route: 042
     Dates: start: 20100707
  6. REMICADE [Suspect]
     Indication: BEHCET^S SYNDROME
     Route: 042
     Dates: start: 20100823
  7. REMICADE [Suspect]
     Indication: BEHCET^S SYNDROME
     Route: 042
     Dates: start: 20101013
  8. REMICADE [Suspect]
     Indication: BEHCET^S SYNDROME
     Route: 042
     Dates: start: 20110615
  9. REMICADE [Suspect]
     Indication: BEHCET^S SYNDROME
     Route: 042
     Dates: start: 20101201
  10. REMICADE [Suspect]
     Indication: BEHCET^S SYNDROME
     Route: 042
     Dates: start: 20110118
  11. REMICADE [Suspect]
     Indication: BEHCET^S SYNDROME
     Route: 042
     Dates: start: 20110308
  12. REMICADE [Suspect]
     Indication: BEHCET^S SYNDROME
     Route: 042
     Dates: start: 20110426
  13. REMICADE [Suspect]
     Indication: BEHCET^S SYNDROME
     Route: 042
     Dates: start: 20090811
  14. REMICADE [Suspect]
     Indication: BEHCET^S SYNDROME
     Route: 042
     Dates: start: 20090728
  15. REMICADE [Suspect]
     Indication: BEHCET^S SYNDROME
     Route: 042
     Dates: start: 20091222
  16. REMICADE [Suspect]
     Indication: BEHCET^S SYNDROME
     Route: 042
     Dates: start: 20090908
  17. RINDERON-A [Concomitant]
     Indication: BEHCET^S SYNDROME
     Dosage: 4 times a day in both eyes
     Route: 031
     Dates: start: 20090128, end: 20100124
  18. RINDERON-A [Concomitant]
     Indication: BEHCET^S SYNDROME
     Dosage: twice to four times a day
     Route: 031
     Dates: start: 20100125, end: 20100706
  19. RINDERON-A [Concomitant]
     Indication: BEHCET^S SYNDROME
     Dosage: four times
     Route: 031
     Dates: start: 20100915, end: 20110728
  20. DIFLUCAN [Concomitant]
     Indication: PROPHYLAXIS
     Route: 048
     Dates: start: 20090728
  21. FLUMETHOLON [Concomitant]
     Indication: BEHCET^S SYNDROME
     Dosage: four times
     Route: 031
     Dates: start: 20100707
  22. ZYRTEC [Concomitant]
     Indication: PROPHYLAXIS
     Route: 048

REACTIONS (2)
  - Interstitial lung disease [Recovering/Resolving]
  - Pleural effusion [Unknown]
